FAERS Safety Report 7551403-8 (Version None)
Quarter: 2011Q2

REPORT INFORMATION
  Report Type: 
  Country: None (occurrence: None)
  Receive Date: 20110616
  Receipt Date: 20110610
  Transmission Date: 20111010
  Serious: Yes (Death, Hospitalization)
  Sender: FDA-Public Use
  Company Number: US-SANOFI-AVENTIS-2011SA037520

PATIENT
  Age: 75 Year
  Sex: Male
  Weight: 75.27 kg

DRUGS (9)
  1. TAXOTERE [Suspect]
     Indication: LUNG SQUAMOUS CELL CARCINOMA STAGE IV
     Route: 042
     Dates: start: 20110324, end: 20110324
  2. LORTAB [Concomitant]
     Dates: end: 20110101
  3. DEXAMETHASONE [Concomitant]
     Indication: PREMEDICATION
     Dates: start: 20110324, end: 20110324
  4. GLIMEPIRIDE [Concomitant]
     Route: 048
     Dates: end: 20110101
  5. PROCHLORPERAZINE TAB [Concomitant]
     Dates: end: 20110101
  6. PANTOPRAZOLE [Concomitant]
     Route: 048
     Dates: end: 20110101
  7. CARBOPLATIN [Suspect]
     Indication: LUNG SQUAMOUS CELL CARCINOMA STAGE IV
     Dosage: AUC 2
     Route: 042
     Dates: start: 20110324, end: 20110324
  8. ASPIRIN [Concomitant]
     Route: 048
     Dates: end: 20110101
  9. ROSUVASTATIN CALCIUM [Concomitant]
     Route: 048
     Dates: end: 20110101

REACTIONS (11)
  - RENAL FAILURE ACUTE [None]
  - TACHYCARDIA [None]
  - HYPOPHAGIA [None]
  - NAUSEA [None]
  - ANAEMIA [None]
  - HYPOTENSION [None]
  - HYPONATRAEMIA [None]
  - URINARY TRACT INFECTION [None]
  - DECREASED APPETITE [None]
  - ASTHENIA [None]
  - DEHYDRATION [None]
